FAERS Safety Report 15451484 (Version 2)
Quarter: 2018Q4

REPORT INFORMATION
  Report Type: Spontaneous
  Country: OM (occurrence: OM)
  Receive Date: 20181001
  Receipt Date: 20181015
  Transmission Date: 20190204
  Serious: Yes (Hospitalization, Other)
  Sender: FDA-Public Use
  Company Number: OM-IMPAX LABORATORIES, INC-2018-IPXL-03154

PATIENT
  Age: 25 Year
  Sex: Female
  Weight: 45 kg

DRUGS (3)
  1. CHLOROQUINE PHOSPHATE. [Suspect]
     Active Substance: CHLOROQUINE PHOSPHATE
     Indication: INTENTIONAL OVERDOSE
     Dosage: 2.7 G, UNK
     Route: 065
  2. ADRENACLICK [Suspect]
     Active Substance: EPINEPHRINE
     Dosage: 5 MG, UNK
     Route: 042
  3. ADRENACLICK [Suspect]
     Active Substance: EPINEPHRINE
     Indication: CARDIAC ARREST
     Dosage: 1 MG, REPEATED AT 1 MINUTE INTERVALS
     Route: 042

REACTIONS (14)
  - Abortion induced [Unknown]
  - Seizure [Unknown]
  - Sinus tachycardia [Unknown]
  - Alanine aminotransferase increased [Unknown]
  - Ventricular fibrillation [Recovering/Resolving]
  - Metabolic acidosis [Recovering/Resolving]
  - Hypokalaemia [Unknown]
  - Hypotension [Unknown]
  - Intentional overdose [Unknown]
  - Maternal exposure during pregnancy [Unknown]
  - Pyrexia [Unknown]
  - Ventricular extrasystoles [Recovered/Resolved]
  - Aspartate aminotransferase increased [Unknown]
  - Cardiac arrest [Unknown]
